FAERS Safety Report 4570468-9 (Version None)
Quarter: 2005Q1

REPORT INFORMATION
  Report Type: 
  Country: None (occurrence: None)
  Receive Date: 20050202
  Receipt Date: 20050202
  Transmission Date: 20050727
  Serious: Yes (Other)
  Sender: FDA-Public Use
  Company Number: None

PATIENT
  Age: 32 Year
  Sex: Male

DRUGS (8)
  1. ROCEPHIN [Suspect]
     Indication: INFECTION
     Dosage: 1 GRAM   Q 24 HOURS   INTRAVENOU
     Route: 042
     Dates: start: 20050124, end: 20050124
  2. ASPIRIN [Concomitant]
  3. DOCUSATE SODIUM [Concomitant]
  4. PHENOBARBITAL [Concomitant]
  5. SEROQUEL [Concomitant]
  6. IBUPROFEN [Concomitant]
  7. DARVOCET [Concomitant]
  8. GENTAMICIN [Concomitant]

REACTIONS (1)
  - RASH ERYTHEMATOUS [None]
